FAERS Safety Report 7475846-6 (Version None)
Quarter: 2011Q2

REPORT INFORMATION
  Report Type: 
  Country: None (occurrence: None)
  Receive Date: 20110512
  Receipt Date: 20110506
  Transmission Date: 20111010
  Serious: Yes (Death)
  Sender: FDA-Public Use
  Company Number: JP-AMGEN-JPNCT2011024227

PATIENT
  Age: 71 Year
  Sex: Male

DRUGS (1)
  1. VECTIBIX [Suspect]
     Dosage: 6 MG/KG, Q2WK
     Route: 041
     Dates: start: 20110427

REACTIONS (1)
  - DEATH [None]
